FAERS Safety Report 6682349-5 (Version None)
Quarter: 2010Q2

REPORT INFORMATION
  Report Type: 
  Country: None (occurrence: None)
  Receive Date: 20100415
  Receipt Date: 20100406
  Transmission Date: 20101027
  Serious: Yes (Hospitalization)
  Sender: FDA-Public Use
  Company Number: FR-PFIZER INC-2010043098

PATIENT
  Age: 14 Year
  Sex: Male

DRUGS (3)
  1. ZOLOFT [Suspect]
     Indication: DEPRESSION
     Dosage: 25 MG PER DAY
     Route: 048
     Dates: start: 20100310, end: 20100317
  2. ZOLOFT [Suspect]
     Indication: OBSESSIVE-COMPULSIVE DISORDER
     Dosage: 50 MG PER DAY
     Route: 048
     Dates: start: 20100317, end: 20100322
  3. ZOLOFT [Suspect]
     Indication: ANXIETY DISORDER

REACTIONS (1)
  - STATUS EPILEPTICUS [None]
